FAERS Safety Report 7327630-1 (Version None)
Quarter: 2011Q1

REPORT INFORMATION
  Report Type: 
  Country: None (occurrence: None)
  Receive Date: 20110303
  Receipt Date: 20110218
  Transmission Date: 20110831
  Serious: Yes (Other)
  Sender: FDA-Public Use
  Company Number: AR-AMGEN-ARGSP2011009320

PATIENT
  Age: 19 Year
  Sex: Female
  Weight: 58 kg

DRUGS (2)
  1. DEFLAZACORT [Concomitant]
     Dosage: 8 MG TO 40 MG DAILY
  2. ENBREL [Suspect]
     Indication: PRODUCT USED FOR UNKNOWN INDICATION
     Dosage: 50 MG, WEEKLY
     Route: 058
     Dates: start: 20051101

REACTIONS (3)
  - SALIVARY GLAND CYST [None]
  - DRUG INEFFECTIVE [None]
  - FALLOPIAN TUBE CYST [None]
